FAERS Safety Report 16287646 (Version 1)
Quarter: 2019Q2

REPORT INFORMATION
  Report Type: Spontaneous
  Country: SE (occurrence: SE)
  Receive Date: 20190508
  Receipt Date: 20190508
  Transmission Date: 20190711
  Serious: Yes (Other)
  Sender: FDA-Public Use
  Company Number: SE-ASTRAZENECA-2019SE66080

PATIENT
  Age: 10 Year
  Sex: Male

DRUGS (1)
  1. GIONA EASYHALER [Suspect]
     Active Substance: BUDESONIDE
     Indication: ASTHMA
     Route: 055
     Dates: end: 20181116

REACTIONS (2)
  - Psychotic disorder [Unknown]
  - Mental fatigue [Unknown]

NARRATIVE: CASE EVENT DATE: 20181115
